FAERS Safety Report 8087624 (Version 8)
Quarter: 2013Q4

REPORT INFORMATION
  Report Type: Spontaneous
  Country: US (occurrence: US)
  Receive Date: 20110812
  Receipt Date: 20131226
  Transmission Date: 20140711
  Serious: Yes (Other)
  Sender: FDA-Public Use
  Company Number: PHEH2011US01222

PATIENT
  Age: 74 Year
  Sex: Female

DRUGS (12)
  1. TASIGNA (AMN107) CAPSULE [Suspect]
     Indication: CHRONIC MYELOID LEUKAEMIA
     Route: 048
     Dates: start: 20090106
  2. OMEPRAZOLE [Concomitant]
     Dosage: UNK UKN, UNK
  3. POTASSIUM [Concomitant]
     Dosage: UNK UKN, UNK
  4. CRESTOR [Concomitant]
     Dosage: UNK UKN, UNK
  5. FUROSEMIDE [Concomitant]
     Dosage: UNK UKN, UNK
  6. METOPROLOL [Concomitant]
     Dosage: UNK UKN, UNK
  7. CEFPROZIL [Concomitant]
     Dosage: UNK UKN, UNK
  8. BONIVA [Concomitant]
     Dosage: UNK UKN, UNK
  9. PLAVIX [Concomitant]
     Dosage: UNK UKN, UNK
  10. TOPROL XL [Concomitant]
  11. COQ10 [Concomitant]
  12. FISH OIL [Concomitant]

REACTIONS (5)
  - Pleural effusion [Recovering/Resolving]
  - Dyspnoea [Recovering/Resolving]
  - Weight increased [Not Recovered/Not Resolved]
  - Pain in extremity [Recovering/Resolving]
  - Intermittent claudication [Recovering/Resolving]
